FAERS Safety Report 5443409-X (Version None)
Quarter: 2007Q3

REPORT INFORMATION
  Report Type: 
  Country: None (occurrence: None)
  Receive Date: 20070905
  Receipt Date: 20070821
  Transmission Date: 20080115
  Serious: Yes (Other)
  Sender: FDA-Public Use
  Company Number: B0484903A

PATIENT
  Age: 4 Year
  Sex: Male

DRUGS (3)
  1. CEFTAZIDIME [Suspect]
     Indication: ANTIBIOTIC PROPHYLAXIS
     Route: 065
  2. GENTAMICIN [Suspect]
     Indication: ANTIBIOTIC PROPHYLAXIS
     Dosage: 4.19MGK THREE TIMES PER DAY
     Route: 065
  3. COLISTIN SULFATE [Suspect]
     Route: 065

REACTIONS (4)
  - BLOOD CREATININE INCREASED [None]
  - OLIGURIA [None]
  - RENAL FAILURE ACUTE [None]
  - RENAL TUBULAR NECROSIS [None]
